FAERS Safety Report 8029565-8 (Version None)
Quarter: 2012Q1

REPORT INFORMATION
  Report Type: 
  Country: None (occurrence: None)
  Receive Date: 20120109
  Receipt Date: 20120103
  Transmission Date: 20120608
  Serious: No
  Sender: FDA-Public Use
  Company Number: US-PFIZER INC-2012001479

PATIENT
  Sex: Female

DRUGS (2)
  1. METFORMIN [Concomitant]
  2. CHANTIX [Suspect]
     Dosage: UNK

REACTIONS (2)
  - BRONCHITIS [None]
  - ABNORMAL DREAMS [None]
